FAERS Safety Report 7213150-1 (Version None)
Quarter: 2011Q1

REPORT INFORMATION
  Report Type: 
  Country: None (occurrence: None)
  Receive Date: 20110106
  Receipt Date: 20110103
  Transmission Date: 20110831
  Serious: Yes (Death, Hospitalization)
  Sender: FDA-Public Use
  Company Number: DE-BRISTOL-MYERS SQUIBB COMPANY-15469604

PATIENT
  Age: 65 Year
  Sex: Female
  Weight: 64 kg

DRUGS (12)
  1. PIPERACILLIN AND TAZOBACTAM [Concomitant]
  2. ASPIRIN [Concomitant]
  3. CLOPIDOGREL BISULFATE [Concomitant]
  4. RAMIPRIL [Concomitant]
  5. TAVOR [Concomitant]
  6. NECITUMUMAB [Suspect]
     Indication: NON-SMALL CELL LUNG CANCER
     Dosage: LIQUID, INTERRUPTED ON 08DEC2010;1DAY
     Route: 042
     Dates: start: 20101208
  7. PEMETREXED DISODIUM [Suspect]
     Indication: NON-SMALL CELL LUNG CANCER
     Dosage: INTERRUPTED ON 08DEC2010;1DAY
     Route: 042
     Dates: start: 20101208
  8. CISPLATIN [Suspect]
     Indication: NON-SMALL CELL LUNG CANCER
     Dosage: INTERRUPTED ON 08DEC2010;1DAY
     Route: 042
     Dates: start: 20101208
  9. LASIX [Concomitant]
  10. SPIRIVA [Concomitant]
  11. BISOPROLOL [Concomitant]
  12. FORMOTEROL FUMARATE [Concomitant]

REACTIONS (2)
  - DEATH [None]
  - CARDIAC FAILURE [None]
